FAERS Safety Report 16195197 (Version 2)
Quarter: 2019Q2

REPORT INFORMATION
  Report Type: Report from Study
  Country: IT (occurrence: IT)
  Receive Date: 20190415
  Receipt Date: 20190514
  Transmission Date: 20190711
  Serious: Yes (Hospitalization)
  Sender: FDA-Public Use
  Company Number: IT-AMGEN-ITACT2019056716

PATIENT
  Age: 9 Year
  Sex: Male
  Weight: 31 kg

DRUGS (4)
  1. VITAMINA D [Concomitant]
     Dosage: 880 INTERNATIONAL UNIT
     Route: 048
     Dates: start: 20180307
  2. CALCIUM [Concomitant]
     Active Substance: CALCIUM
     Dosage: 1000 MILLIGRAM
     Route: 048
     Dates: start: 20180307
  3. DENOSUMAB [Suspect]
     Active Substance: DENOSUMAB
     Indication: OSTEOGENESIS IMPERFECTA
     Dosage: 0.49 MILLILITER, Q6MO
     Route: 058
     Dates: start: 20180409
  4. IBUPROFEN. [Concomitant]
     Active Substance: IBUPROFEN
     Dosage: 10 MILLILITER
     Route: 048
     Dates: start: 20190327, end: 20190403

REACTIONS (1)
  - Lumbar vertebral fracture [Not Recovered/Not Resolved]

NARRATIVE: CASE EVENT DATE: 20190403
